FAERS Safety Report 9789835 (Version 2)
Quarter: 2014Q1

REPORT INFORMATION
  Report Type: Spontaneous
  Country: DE (occurrence: DE)
  Receive Date: 20131231
  Receipt Date: 20140204
  Transmission Date: 20141002
  Serious: Yes (Other)
  Sender: FDA-Public Use
  Company Number: DE-RANBAXY-2013RR-76659

PATIENT
  Sex: Female

DRUGS (1)
  1. SERTRALIN [Suspect]
     Indication: DEPRESSION
     Dosage: 50 MG, QD
     Route: 048
     Dates: start: 200910, end: 20131024

REACTIONS (3)
  - Blood creatine phosphokinase increased [Recovered/Resolved]
  - Erythropenia [Recovered/Resolved]
  - Leukopenia [Recovered/Resolved]
